FAERS Safety Report 9165978 (Version 2)
Quarter: 2013Q2

REPORT INFORMATION
  Report Type: Spontaneous
  Country: US (occurrence: US)
  Receive Date: 20130315
  Receipt Date: 20130402
  Transmission Date: 20140414
  Serious: Yes (Life-Threatening, Hospitalization)
  Sender: FDA-Public Use
  Company Number: US-PERRIGO-13US002615

PATIENT
  Age: 59 Year
  Sex: Female
  Weight: 68.03 kg

DRUGS (2)
  1. NAPROXEN SODIUM-PSEUDOEPHEDRINE HYDROCHLORIDE ER 253 [Suspect]
     Indication: ACCIDENTAL EXPOSURE TO PRODUCT
     Dosage: 1 CAPLET, ONCE
     Route: 048
     Dates: start: 20130112, end: 20130112
  2. HYDROCORTISONE [Concomitant]
     Indication: PRODUCT USED FOR UNKNOWN INDICATION
     Dosage: UNK
     Route: 065

REACTIONS (8)
  - Apparent death [Recovered/Resolved]
  - Cardiac arrest [Recovered/Resolved]
  - Multi-organ failure [Recovered/Resolved]
  - Anaphylactic shock [Recovered/Resolved]
  - Gastrointestinal haemorrhage [Recovered/Resolved]
  - Drug dispensing error [Recovered/Resolved]
  - Product label confusion [Unknown]
  - Accidental exposure to product [Recovered/Resolved]
